FAERS Safety Report 18815375 (Version 1)
Quarter: 2021Q1

REPORT INFORMATION
  Report Type: Spontaneous
  Country: US (occurrence: US)
  Receive Date: 20210129
  Receipt Date: 20210129
  Transmission Date: 20210419
  Serious: Yes (Hospitalization)
  Sender: FDA-Public Use
  Company Number: None

PATIENT
  Age: 61 Year
  Sex: Female

DRUGS (13)
  1. ENBREL [Suspect]
     Active Substance: ETANERCEPT
     Route: 058
     Dates: start: 20210115
  2. FISH OIL [Concomitant]
     Active Substance: FISH OIL
  3. VIT B50 [Concomitant]
  4. ALLOPURINOL. [Concomitant]
     Active Substance: ALLOPURINOL
  5. OSTEO BI?FLX [Concomitant]
  6. CALCIUM CARB [Concomitant]
     Active Substance: CALCIUM CARBONATE
  7. REPATHA [Suspect]
     Active Substance: EVOLOCUMAB
     Route: 058
  8. METAMUCIL [Concomitant]
     Active Substance: PLANTAGO SEED
  9. BIOTIN [Concomitant]
     Active Substance: BIOTIN
  10. VIT D [Concomitant]
     Active Substance: VITAMIN D NOS
  11. MAGNESIUM [Concomitant]
     Active Substance: MAGNESIUM
  12. METOPROL TAR [Concomitant]
  13. VITAMIN C [Concomitant]
     Active Substance: ASCORBIC ACID

REACTIONS (1)
  - Intentional dose omission [None]
